FAERS Safety Report 8321838-4 (Version None)
Quarter: 2012Q2

REPORT INFORMATION
  Report Type: 
  Country: None (occurrence: None)
  Receive Date: 20120430
  Receipt Date: 20120425
  Transmission Date: 20120825
  Serious: Yes (Hospitalization)
  Sender: FDA-Public Use
  Company Number: US-GLAXOSMITHKLINE-A0973098A

PATIENT
  Age: 62 Year
  Sex: Female
  Weight: 68.2 kg

DRUGS (1)
  1. TYKERB [Suspect]
     Indication: BREAST CANCER METASTATIC
     Dosage: 250MG PER DAY
     Route: 048
     Dates: start: 20120309, end: 20120318

REACTIONS (1)
  - CONFUSIONAL STATE [None]
